FAERS Safety Report 21486136 (Version 4)
Quarter: 2022Q4

REPORT INFORMATION
  Report Type: Report from Study
  Country: DE (occurrence: None)
  Receive Date: 20221020
  Receipt Date: 20221220
  Transmission Date: 20230113
  Serious: Yes (Life-Threatening, Hospitalization, Other)
  Sender: FDA-Public Use
  Company Number: 2022A345034

PATIENT
  Age: 74 Month
  Sex: Male
  Weight: 50 kg

DRUGS (7)
  1. SELUMETINIB [Suspect]
     Active Substance: SELUMETINIB
     Indication: Hypothalamo-pituitary disorder
     Route: 048
     Dates: start: 20220317, end: 20220911
  2. HYDROCORTISONE [Concomitant]
     Active Substance: HYDROCORTISONE
     Dosage: 6-6-3 MG
     Dates: start: 2020
  3. DESMOPRESSIN [Concomitant]
     Active Substance: DESMOPRESSIN
     Dosage: 0,15-0,1-0,25MG
     Dates: start: 2020, end: 20220911
  4. LTHYROXINE [Concomitant]
     Dosage: 75 UG/D
     Dates: start: 2020
  5. MELATONIN [Concomitant]
     Active Substance: MELATONIN
     Dosage: 10MG
     Dates: start: 2022, end: 20220911
  6. RIVAROXABAN [Concomitant]
     Active Substance: RIVAROXABAN
     Dosage: 15 MG
     Dates: start: 20220909, end: 20220910
  7. METHYLPHENIDATE [Concomitant]
     Active Substance: METHYLPHENIDATE
     Dosage: 20 MG
     Dates: start: 2021, end: 20220911

REACTIONS (13)
  - Rhabdomyolysis [Not Recovered/Not Resolved]
  - Acute kidney injury [Not Recovered/Not Resolved]
  - Continuous haemodiafiltration [Not Recovered/Not Resolved]
  - Blood creatine phosphokinase increased [Unknown]
  - Embolism venous [Unknown]
  - Gastroenteritis adenovirus [Unknown]
  - Diarrhoea [Recovered/Resolved]
  - Respiratory failure [Unknown]
  - Cardiac arrest [Unknown]
  - Megacolon [Unknown]
  - Oliguria [Unknown]
  - Muscle disorder [Unknown]
  - Myopathy [Unknown]

NARRATIVE: CASE EVENT DATE: 20220601
